FAERS Safety Report 8624719-1 (Version None)
Quarter: 2012Q3

REPORT INFORMATION
  Report Type: 
  Country: None (occurrence: None)
  Receive Date: 20120827
  Receipt Date: 20120816
  Transmission Date: 20120928
  Serious: Yes (Other)
  Sender: FDA-Public Use
  Company Number: US-VERTEX PHARMACEUTICAL INC.-AE-2012-000858

PATIENT
  Sex: Male

DRUGS (3)
  1. RIBAVIRIN [Suspect]
     Indication: HEPATITIS C
     Dosage: 400 MG, BID
     Route: 048
     Dates: start: 20111120
  2. VX-950 [Suspect]
     Indication: HEPATITIS C
     Dosage: 750 MG, TID
     Route: 048
     Dates: start: 20111120, end: 20120212
  3. PEGASYS [Suspect]
     Indication: HEPATITIS C
     Dosage: 180 A?G, UNK
     Route: 058
     Dates: start: 20111120

REACTIONS (9)
  - NIGHT SWEATS [None]
  - BODY TEMPERATURE INCREASED [None]
  - BLOOD URIC ACID INCREASED [None]
  - DYSGEUSIA [None]
  - INSOMNIA [None]
  - SINUSITIS [None]
  - ASCITES [None]
  - ANAEMIA [None]
  - OEDEMA PERIPHERAL [None]
